FAERS Safety Report 23098354 (Version 1)
Quarter: 2023Q4

REPORT INFORMATION
  Report Type: Spontaneous
  Country: US (occurrence: None)
  Receive Date: 20231023
  Receipt Date: 20231023
  Transmission Date: 20240109
  Serious: Yes (Death, Hospitalization, Other)
  Sender: FDA-Public Use
  Company Number: 2023A240703

PATIENT
  Age: 61 Year
  Sex: Female
  Weight: 80 kg

DRUGS (3)
  1. FARXIGA [Suspect]
     Active Substance: DAPAGLIFLOZIN PROPANEDIOL
     Indication: Rash
     Dosage: 40[IU]/L DAILY
     Route: 048
     Dates: start: 20230801
  2. FARXIGA [Suspect]
     Active Substance: DAPAGLIFLOZIN PROPANEDIOL
     Indication: Rash
     Dosage: 40[IU]/L DAILY
     Route: 048
     Dates: start: 20230803, end: 20230808
  3. ACETAMINOPHEN [Concomitant]
     Active Substance: ACETAMINOPHEN
     Indication: Pyrexia
     Dosage: 10.0GTT UNKNOWN
     Route: 002
     Dates: start: 20230804

REACTIONS (4)
  - Pyrexia [Fatal]
  - Myocardial infarction [Fatal]
  - Vomiting [Not Recovered/Not Resolved]
  - Headache [Recovered/Resolved with Sequelae]

NARRATIVE: CASE EVENT DATE: 20230805
